FAERS Safety Report 4317562-5 (Version None)
Quarter: 2004Q1

REPORT INFORMATION
  Report Type: 
  Country: None (occurrence: None)
  Receive Date: 20040312
  Receipt Date: 20040302
  Transmission Date: 20041129
  Serious: Yes (Death, Other)
  Sender: FDA-Public Use
  Company Number: 2004-00893

PATIENT
  Age: 35 Year
  Sex: Female

DRUGS (2)
  1. THIORIDAZINE HCL [Suspect]
     Indication: PSYCHOTIC DISORDER
     Dosage: 50 TABLET, SINGLE
  2. LITHIUM (LITHIUM) CAPSULE, 300MG [Suspect]
     Indication: BIPOLAR DISORDER

REACTIONS (2)
  - CARDIAC FAILURE ACUTE [None]
  - NEUROLEPTIC MALIGNANT SYNDROME [None]
